FAERS Safety Report 16393296 (Version 1)
Quarter: 2019Q2

REPORT INFORMATION
  Report Type: Spontaneous
  Country: ES (occurrence: ES)
  Receive Date: 20190605
  Receipt Date: 20190605
  Transmission Date: 20190711
  Serious: Yes (Other)
  Sender: FDA-Public Use
  Company Number: ES-ROCHE-2324878

PATIENT
  Age: 82 Year
  Sex: Female
  Weight: 55 kg

DRUGS (10)
  1. LEFLUNOMIDE. [Suspect]
     Active Substance: LEFLUNOMIDE
     Indication: PRODUCT USED FOR UNKNOWN INDICATION
     Route: 065
     Dates: start: 20081123
  2. LEFLUNOMIDE. [Suspect]
     Active Substance: LEFLUNOMIDE
     Route: 065
     Dates: start: 20110705, end: 20120703
  3. TOCILIZUMAB. [Suspect]
     Active Substance: TOCILIZUMAB
     Indication: PRODUCT USED FOR UNKNOWN INDICATION
     Route: 065
     Dates: start: 20100603
  4. RITUXIMAB. [Suspect]
     Active Substance: RITUXIMAB
     Indication: RHEUMATOID ARTHRITIS
     Route: 065
     Dates: start: 20081104, end: 20090922
  5. PREDNISONE. [Suspect]
     Active Substance: PREDNISONE
     Indication: RHEUMATOID ARTHRITIS
     Route: 065
     Dates: start: 20080527
  6. PREDNISONE. [Suspect]
     Active Substance: PREDNISONE
     Route: 065
     Dates: start: 20110705, end: 20120703
  7. HUMIRA [Suspect]
     Active Substance: ADALIMUMAB
     Route: 058
     Dates: start: 20130528, end: 20130909
  8. HUMIRA [Suspect]
     Active Substance: ADALIMUMAB
     Indication: RHEUMATOID ARTHRITIS
     Route: 058
     Dates: start: 200506, end: 20080527
  9. HUMIRA [Suspect]
     Active Substance: ADALIMUMAB
     Route: 058
     Dates: start: 20110705, end: 20120703
  10. ENBREL [Suspect]
     Active Substance: ETANERCEPT
     Indication: RHEUMATOID ARTHRITIS
     Route: 065
     Dates: start: 20080527, end: 20081015

REACTIONS (16)
  - Dermatitis psoriasiform [Unknown]
  - Toxicity to various agents [Recovered/Resolved]
  - Ventricular fibrillation [Recovered/Resolved with Sequelae]
  - Neck pain [Recovered/Resolved]
  - Drug ineffective [Unknown]
  - Tendonitis [Recovered/Resolved]
  - Arthralgia [Recovered/Resolved]
  - Infusion related reaction [Unknown]
  - Pyoderma gangrenosum [Recovered/Resolved]
  - Bone marrow oedema [Unknown]
  - Cardiac failure [Recovered/Resolved]
  - Rheumatoid arthritis [Recovered/Resolved]
  - Hyperhidrosis [Unknown]
  - Rash [Unknown]
  - Headache [Unknown]
  - Palmoplantar pustulosis [Recovered/Resolved]

NARRATIVE: CASE EVENT DATE: 200805
